FAERS Safety Report 14477333 (Version 1)
Quarter: 2018Q1

REPORT INFORMATION
  Report Type: Report from Study
  Country: US (occurrence: US)
  Receive Date: 20180201
  Receipt Date: 20180201
  Transmission Date: 20180509
  Serious: No
  Sender: FDA-Public Use
  Company Number: US-EXELIXIS-CABO-17010819

PATIENT
  Sex: Male
  Weight: 105.67 kg

DRUGS (2)
  1. LISINOPRIL. [Concomitant]
     Active Substance: LISINOPRIL
  2. CABOMETYX [Suspect]
     Active Substance: CABOZANTINIB S-MALATE
     Indication: RENAL CELL CARCINOMA
     Dosage: 60 MG, QD
     Route: 048
     Dates: start: 20170906, end: 20171005

REACTIONS (7)
  - Feeding disorder [Unknown]
  - Tooth disorder [Unknown]
  - Ageusia [Unknown]
  - Aphonia [Unknown]
  - Memory impairment [Unknown]
  - Abdominal pain upper [Unknown]
  - Muscle spasms [Unknown]
